FAERS Safety Report 6542266-8 (Version None)
Quarter: 2010Q1

REPORT INFORMATION
  Report Type: 
  Country: None (occurrence: None)
  Receive Date: 20100119
  Receipt Date: 20100114
  Transmission Date: 20100710
  Serious: Yes (Other)
  Sender: FDA-Public Use
  Company Number: FR-BRISTOL-MYERS SQUIBB COMPANY-14934616

PATIENT
  Age: 37 Year
  Sex: Male

DRUGS (2)
  1. ABILIFY [Suspect]
     Indication: DEPRESSION
     Dosage: DOSE INCREASED TO 30 MG PER DAY
     Route: 048
     Dates: start: 20040101
  2. SEROPLEX [Suspect]
     Indication: DEPRESSION
     Dosage: DOSE INREASED TO 30MG PER DAY
     Route: 048

REACTIONS (2)
  - DEPRESSION [None]
  - INFERTILITY [None]
